FAERS Safety Report 18089727 (Version 4)
Quarter: 2020Q4

REPORT INFORMATION
  Report Type: Report from Study
  Country: TH (occurrence: TH)
  Receive Date: 20200729
  Receipt Date: 20201026
  Transmission Date: 20210113
  Serious: Yes (Death, Hospitalization, Other)
  Sender: FDA-Public Use
  Company Number: TH-SEATTLE GENETICS-2020SGN02150

PATIENT
  Sex: Female

DRUGS (1)
  1. BRENTUXIMAB VEDOTIN [Suspect]
     Active Substance: BRENTUXIMAB VEDOTIN
     Indication: HODGKIN^S DISEASE REFRACTORY
     Dosage: 100 MILLIGRAM, Q3WEEKS
     Route: 050
     Dates: start: 20200421

REACTIONS (3)
  - Sepsis [Fatal]
  - Pyrexia [Unknown]
  - Abdominal pain upper [Unknown]
